FAERS Safety Report 4764913-3 (Version None)
Quarter: 2005Q3

REPORT INFORMATION
  Report Type: 
  Country: None (occurrence: None)
  Receive Date: 20050906
  Receipt Date: 20050822
  Transmission Date: 20060218
  Serious: Yes (Hospitalization)
  Sender: FDA-Public Use
  Company Number: CIP05001986

PATIENT
  Age: 53 Year
  Sex: Female

DRUGS (3)
  1. ACTONEL [Suspect]
     Indication: OSTEITIS DEFORMANS
     Dosage: 30 MG, DAILY, ORAL;30 MG EVERY OTHER DAY, ORAL; 30 MG DAILY, ORAL
     Route: 048
  2. ACTONEL [Suspect]
     Indication: OSTEITIS DEFORMANS
     Dosage: 30 MG, DAILY, ORAL;30 MG EVERY OTHER DAY, ORAL; 30 MG DAILY, ORAL
     Route: 048
  3. ACTONEL [Suspect]
     Indication: OSTEITIS DEFORMANS
     Dosage: 30 MG, DAILY, ORAL;30 MG EVERY OTHER DAY, ORAL; 30 MG DAILY, ORAL
     Route: 048

REACTIONS (6)
  - BLOOD PARATHYROID HORMONE DECREASED [None]
  - BONE DISORDER [None]
  - DYSARTHRIA [None]
  - HYPOCALCAEMIA [None]
  - MENTAL STATUS CHANGES [None]
  - MYOCLONUS [None]
